FAERS Safety Report 5471878-8 (Version None)
Quarter: 2007Q3

REPORT INFORMATION
  Report Type: 
  Country: None (occurrence: None)
  Receive Date: 20070928
  Receipt Date: 20070719
  Transmission Date: 20080115
  Serious: No
  Sender: FDA-Public Use
  Company Number: US-BRISTOL-MYERS SQUIBB COMPANY-13851035

PATIENT
  Sex: Female

DRUGS (10)
  1. DEFINITY [Suspect]
  2. NORVASC [Concomitant]
  3. CALCIUM [Concomitant]
  4. THIAMINE HCL [Concomitant]
  5. TRICOR [Concomitant]
  6. ACTONEL [Concomitant]
  7. LIPITOR [Concomitant]
  8. NASONEX [Concomitant]
  9. CLARITIN [Concomitant]
  10. ASPIRIN [Concomitant]

REACTIONS (2)
  - BACK PAIN [None]
  - MUSCLE SPASMS [None]
